FAERS Safety Report 17329471 (Version 1)
Quarter: 2020Q1

REPORT INFORMATION
  Report Type: Spontaneous
  Country: US (occurrence: US)
  Receive Date: 20200127
  Receipt Date: 20200127
  Transmission Date: 20200409
  Serious: No
  Sender: FDA-Public Use
  Company Number: None

PATIENT
  Age: 33 Year
  Sex: Female

DRUGS (4)
  1. ERYTHROMYCIN. [Concomitant]
     Active Substance: ERYTHROMYCIN
  2. HUMIRA [Suspect]
     Active Substance: ADALIMUMAB
     Indication: HIDRADENITIS
     Dosage: ?          OTHER FREQUENCY:EVERY WEEK;?
     Route: 058
  3. MEDROXY [Concomitant]
     Active Substance: MEDROXYPROGESTERONE ACETATE
  4. VITAMIN D [Concomitant]
     Active Substance: VITAMIN D NOS

REACTIONS (4)
  - Condition aggravated [None]
  - Pruritus genital [None]
  - Injection site pain [None]
  - Skin lesion [None]

NARRATIVE: CASE EVENT DATE: 20200124
